FAERS Safety Report 8787408 (Version 1)
Quarter: 2012Q4

REPORT INFORMATION
  Report Type: Report from Study
  Country: US (occurrence: US)
  Receive Date: 20120914
  Receipt Date: 20120914
  Transmission Date: 20130627
  Serious: No
  Sender: FDA-Public Use
  Company Number: US-VERTEX PHARMACEUTICAL INC.-AE-2012-009762

PATIENT

DRUGS (5)
  1. INCIVEK [Suspect]
     Indication: HEPATITIS C
     Route: 048
     Dates: start: 20120605
  2. PEGASYS [Concomitant]
     Indication: HEPATITIS C
     Route: 058
     Dates: start: 20120605
  3. RIBASPHERE [Concomitant]
     Indication: HEPATITIS C
     Route: 048
     Dates: start: 20120605
  4. BUPROPION HCL SR [Concomitant]
     Route: 048
  5. KLONOPIN [Concomitant]
     Route: 048

REACTIONS (11)
  - Dyspnoea [Unknown]
  - Dizziness [Unknown]
  - Depression [Unknown]
  - Influenza like illness [Unknown]
  - Chills [Unknown]
  - Fatigue [Unknown]
  - Rash pruritic [Unknown]
  - Diarrhoea [Unknown]
  - Vomiting [Unknown]
  - Nausea [Unknown]
  - Anaemia [Unknown]
